FAERS Safety Report 21246255 (Version 1)
Quarter: 2022Q3

REPORT INFORMATION
  Report Type: Spontaneous
  Country: IT (occurrence: IT)
  Receive Date: 20220824
  Receipt Date: 20220824
  Transmission Date: 20221027
  Serious: Yes (Death, Hospitalization, Other)
  Sender: FDA-Public Use
  Company Number: IT-DSJP-DSE-2022-127733

PATIENT
  Age: 76 Year
  Sex: Female

DRUGS (5)
  1. OLMESARTAN [Suspect]
     Active Substance: OLMESARTAN
     Indication: Product used for unknown indication
     Dosage: 20 MILLIGRAM, ONCE A DAY(20 MG, QD)
     Route: 065
  2. CANRENONE [Concomitant]
     Active Substance: CANRENONE
     Indication: Product used for unknown indication
     Dosage: 50 MILLIGRAM, ONCE A DAY (50 MG, QD)
     Route: 065
  3. AMLODIPINE [Concomitant]
     Active Substance: AMLODIPINE BESYLATE
     Indication: Product used for unknown indication
     Dosage: 5 MILLIGRAM, ONCE A DAY (5 MG, QD)
     Route: 065
  4. ATORVASTATIN [Concomitant]
     Active Substance: ATORVASTATIN
     Indication: Product used for unknown indication
     Dosage: 20 MILLIGRAM, ONCE A DAY(20 MG, QD)
     Route: 065
  5. FUROSEMIDE [Concomitant]
     Active Substance: FUROSEMIDE
     Indication: Product used for unknown indication
     Dosage: 25 MILLIGRAM(25 MG, TID)
     Route: 065

REACTIONS (5)
  - Cardiac failure [Fatal]
  - Left ventricular hypertrophy [Fatal]
  - Cardiac amyloidosis [Fatal]
  - Multiple organ dysfunction syndrome [Fatal]
  - Pulmonary arterial hypertension [Fatal]
